FAERS Safety Report 13993383 (Version 1)
Quarter: 2017Q3

REPORT INFORMATION
  Report Type: Spontaneous
  Country: US (occurrence: US)
  Receive Date: 20170920
  Receipt Date: 20170920
  Transmission Date: 20171128
  Serious: Yes (Other)
  Sender: FDA-Public Use
  Company Number: US-JNJFOC-20170913951

PATIENT

DRUGS (1)
  1. ITRACONAZOLE. [Suspect]
     Active Substance: ITRACONAZOLE
     Indication: FUNGAL INFECTION
     Route: 065

REACTIONS (6)
  - Gastrointestinal disorder [Unknown]
  - Cardiac disorder [Unknown]
  - Injury [Unknown]
  - Toxicity to various agents [Unknown]
  - Cardiovascular disorder [Unknown]
  - Arteriosclerosis coronary artery [Unknown]
